FAERS Safety Report 17991864 (Version 2)
Quarter: 2020Q4

REPORT INFORMATION
  Report Type: Spontaneous
  Country: US (occurrence: US)
  Receive Date: 20200707
  Receipt Date: 20201027
  Transmission Date: 20210113
  Serious: Yes (Death)
  Sender: FDA-Public Use
  Company Number: US-NAPPMUNDI-USA-2020-0154415

PATIENT
  Age: 77 Year
  Sex: Female

DRUGS (4)
  1. VICODIN ES [Suspect]
     Active Substance: ACETAMINOPHEN\HYDROCODONE BITARTRATE
     Indication: PAIN
     Dosage: 1 TABLET, Q4H
     Route: 048
     Dates: end: 20141103
  2. OXYCODONE HYDROCHLORIDE (SIMILAR TO NDA 22-272) [Suspect]
     Active Substance: OXYCODONE HYDROCHLORIDE
     Indication: PRODUCT USED FOR UNKNOWN INDICATION
     Dosage: 10 MG,  5 TIMES DAILY
     Route: 048
     Dates: end: 20141103
  3. INSULIN [Concomitant]
     Active Substance: INSULIN NOS
     Indication: PRODUCT USED FOR UNKNOWN INDICATION
     Dosage: UNK
  4. FENTANYL. [Suspect]
     Active Substance: FENTANYL
     Indication: PRODUCT USED FOR UNKNOWN INDICATION
     Dosage: 25-75 MCG/HR, EVERY 3 DAYS
     Route: 062
     Dates: end: 20141103

REACTIONS (3)
  - Death [Fatal]
  - Cardiac arrest [Fatal]
  - Incontinence [Unknown]

NARRATIVE: CASE EVENT DATE: 20141103
